FAERS Safety Report 5418854-9 (Version None)
Quarter: 2007Q3

REPORT INFORMATION
  Report Type: 
  Country: None (occurrence: None)
  Receive Date: 20070718
  Receipt Date: 20060717
  Transmission Date: 20080115
  Serious: Yes (Hospitalization)
  Sender: FDA-Public Use
  Company Number: 2006090586

PATIENT
  Age: 42 Year
  Sex: Female
  Weight: 79.3795 kg

DRUGS (1)
  1. CELEBREX [Suspect]
     Indication: PAIN
     Dosage: 200 MG (100 MG, 2 IN 1 D)
     Dates: start: 19990101

REACTIONS (1)
  - CEREBROVASCULAR ACCIDENT [None]
